FAERS Safety Report 7488514-1 (Version None)
Quarter: 2011Q2

REPORT INFORMATION
  Report Type: 
  Country: None (occurrence: None)
  Receive Date: 20110518
  Receipt Date: 20110504
  Transmission Date: 20111010
  Serious: Yes (Hospitalization, Other)
  Sender: FDA-Public Use
  Company Number: FR-JNJFOC-20110406316

PATIENT
  Age: 55 Year
  Sex: Female
  Weight: 59 kg

DRUGS (10)
  1. REMICADE [Suspect]
     Route: 042
     Dates: start: 20081114
  2. NOVATREX NOS [Concomitant]
     Dates: start: 20060101, end: 20110228
  3. REMICADE [Suspect]
     Route: 042
     Dates: start: 20090119
  4. REMICADE [Suspect]
     Route: 042
     Dates: start: 20080523
  5. PLAQUENIL [Concomitant]
     Dosage: 2 TAB
     Dates: start: 20100913
  6. FOLIC ACID [Concomitant]
     Dates: start: 20060101
  7. REMICADE [Suspect]
     Indication: RHEUMATOID ARTHRITIS
     Route: 042
     Dates: start: 20080609
  8. REMICADE [Suspect]
     Route: 042
     Dates: start: 20080915
  9. REMICADE [Suspect]
     Route: 042
  10. REMICADE [Suspect]
     Route: 042
     Dates: end: 20110228

REACTIONS (1)
  - MYOCARDIAL INFARCTION [None]
